FAERS Safety Report 7028665-9 (Version None)
Quarter: 2010Q4

REPORT INFORMATION
  Report Type: 
  Country: None (occurrence: None)
  Receive Date: 20101004
  Receipt Date: 20101004
  Transmission Date: 20110411
  Serious: Yes (Life-Threatening, Hospitalization, Disabling)
  Sender: FDA-Public Use
  Company Number: None

PATIENT
  Age: 25 Year
  Sex: Female
  Weight: 58.9676 kg

DRUGS (1)
  1. LAMICTAL [Suspect]
     Indication: MOOD ALTERED
     Dosage: 100MG 1 X A DAY
     Dates: start: 20100801, end: 20100915

REACTIONS (13)
  - CONJUNCTIVITIS [None]
  - DRUG HYPERSENSITIVITY [None]
  - EAR DISORDER [None]
  - FLUID INTAKE REDUCED [None]
  - FUNGAL INFECTION [None]
  - HYPOPHAGIA [None]
  - NASOPHARYNGITIS [None]
  - OROPHARYNGEAL PAIN [None]
  - PRURITUS [None]
  - SINUS DISORDER [None]
  - STEVENS-JOHNSON SYNDROME [None]
  - VIRAL INFECTION [None]
  - VULVOVAGINAL DISCOMFORT [None]
